FAERS Safety Report 11833533 (Version 2)
Quarter: 2016Q1

REPORT INFORMATION
  Report Type: Spontaneous
  Country: FR (occurrence: FR)
  Receive Date: 20151214
  Receipt Date: 20160315
  Transmission Date: 20160525
  Serious: Yes (Hospitalization)
  Sender: FDA-Public Use
  Company Number: FR-PFIZER INC-2015434799

PATIENT
  Age: 52 Year
  Sex: Male

DRUGS (15)
  1. DEPAKINE /00228502/ [Suspect]
     Active Substance: VALPROATE SODIUM
     Indication: SEIZURE
     Dosage: UNK
     Dates: start: 20150929, end: 20151016
  2. DUROGESIC [Suspect]
     Active Substance: FENTANYL
     Dosage: UNK
     Route: 062
     Dates: start: 20150917
  3. ACTISKENAN [Suspect]
     Active Substance: MORPHINE SULFATE
     Dosage: UNK
     Route: 048
     Dates: start: 20150917, end: 20151008
  4. ATARAX [Suspect]
     Active Substance: HYDROXYZINE\HYDROXYZINE HYDROCHLORIDE
     Dosage: 50 MG, DAILY
     Route: 048
     Dates: start: 20150917, end: 20150926
  5. FORADIL [Suspect]
     Active Substance: FORMOTEROL FUMARATE
     Dosage: UNK
     Dates: start: 20150917
  6. URBANYL [Suspect]
     Active Substance: CLOBAZAM
     Dosage: UNK
     Route: 048
     Dates: start: 20150925, end: 20151019
  7. DAFALGAN [Suspect]
     Active Substance: ACETAMINOPHEN
     Indication: PAIN
     Dosage: 4 G, DAILY
     Route: 048
     Dates: start: 20150917, end: 20150927
  8. DUPHALAC [Suspect]
     Active Substance: LACTULOSE
     Dosage: UNK
     Route: 048
     Dates: start: 20150918, end: 20150923
  9. SETOFILM [Suspect]
     Active Substance: ONDANSETRON
     Dosage: UNK
     Route: 062
     Dates: start: 20150917, end: 20151026
  10. SOLU-MEDROL [Suspect]
     Active Substance: METHYLPREDNISOLONE SODIUM SUCCINATE
     Indication: BRAIN OEDEMA
     Dosage: 61 MG, DAILY
     Route: 042
     Dates: start: 20150929, end: 20151023
  11. LARGACTIL /00011902/ [Suspect]
     Active Substance: CHLORPROMAZINE HYDROCHLORIDE
     Indication: NAUSEA
     Dosage: 1 DF, AS NEEDED
     Route: 042
     Dates: start: 20150923, end: 20150928
  12. PRIMPERAN [Suspect]
     Active Substance: METOCLOPRAMIDE HYDROCHLORIDE
     Indication: NAUSEA
     Dosage: UNK
     Route: 048
     Dates: start: 20150918, end: 20150924
  13. INEXIUM [Suspect]
     Active Substance: ESOMEPRAZOLE
     Dosage: 40 MG, DAILY
     Route: 048
     Dates: start: 20150917
  14. ACUPAN [Suspect]
     Active Substance: NEFOPAM HYDROCHLORIDE
     Dosage: UNK
     Route: 042
     Dates: start: 20150917, end: 20151008
  15. MODANE /06372101/ [Suspect]
     Active Substance: CALCIUM PANTOTHENATE\SENNA LEAF
     Dosage: UNK
     Dates: start: 20150923

REACTIONS (1)
  - Agranulocytosis [Recovering/Resolving]

NARRATIVE: CASE EVENT DATE: 20150929
